FAERS Safety Report 6277306-7 (Version None)
Quarter: 2009Q3

REPORT INFORMATION
  Report Type: 
  Country: None (occurrence: None)
  Receive Date: 20090722
  Receipt Date: 20090327
  Transmission Date: 20100115
  Serious: No
  Sender: FDA-Public Use
  Company Number: US-BRISTOL-MYERS SQUIBB COMPANY-14564637

PATIENT
  Age: 70 Year
  Sex: Male

DRUGS (14)
  1. COUMADIN [Suspect]
     Route: 065
  2. ELIGARD [Suspect]
     Indication: PROSTATE CANCER
     Route: 058
     Dates: start: 20081001, end: 20081001
  3. LANOXIN [Suspect]
     Route: 065
  4. DOCETAXEL [Concomitant]
     Route: 065
  5. LEVOTHYROXINE SODIUM [Concomitant]
     Route: 065
  6. ZOLEDRONIC ACID [Concomitant]
     Route: 065
  7. PEGFILGRASTIM [Concomitant]
     Route: 065
  8. CALCIUM [Concomitant]
     Route: 065
  9. MAGNESIUM [Concomitant]
     Route: 065
  10. VITAMIN D [Concomitant]
     Route: 065
  11. PREDNISONE [Concomitant]
     Route: 065
  12. GLIPIZIDE [Concomitant]
     Route: 065
  13. PANTOPRAZOLE SODIUM [Concomitant]
     Route: 065
  14. PARACETAMOL [Concomitant]
     Route: 065

REACTIONS (1)
  - BLOOD GLUCOSE INCREASED [None]
